FAERS Safety Report 23192196 (Version 1)
Quarter: 2023Q4

REPORT INFORMATION
  Report Type: Spontaneous
  Country: US (occurrence: None)
  Receive Date: 20231116
  Receipt Date: 20231116
  Transmission Date: 20240109
  Serious: Yes (Hospitalization)
  Sender: FDA-Public Use
  Company Number: None

PATIENT
  Sex: Female

DRUGS (1)
  1. STELARA [Suspect]
     Active Substance: USTEKINUMAB
     Indication: Crohn^s disease
     Dosage: 90MG EVERY 4 WEEKS UNDER THE SKIN
     Route: 058
     Dates: start: 202209

REACTIONS (4)
  - Intestinal anastomosis [None]
  - Post procedural complication [None]
  - Large intestinal ulcer [None]
  - Enterocolonic fistula [None]
